FAERS Safety Report 19583656 (Version 5)
Quarter: 2022Q3

REPORT INFORMATION
  Report Type: Spontaneous
  Country: DE (occurrence: DE)
  Receive Date: 20210720
  Receipt Date: 20220727
  Transmission Date: 20221026
  Serious: Yes (Other)
  Sender: FDA-Public Use
  Company Number: DE-NOVARTISPH-NVSC2021DE155429

PATIENT
  Sex: Male
  Weight: 93 kg

DRUGS (68)
  1. VALSARTAN [Suspect]
     Active Substance: VALSARTAN
     Indication: Hypertension
     Dosage: 320 MG, QD (MORNING)
     Route: 048
  2. VALSARTAN [Suspect]
     Active Substance: VALSARTAN
     Dosage: 320 MG, QD (MORNING)
     Route: 065
     Dates: start: 20160419
  3. VALSARTAN [Suspect]
     Active Substance: VALSARTAN
     Dosage: 320 MG, QD (MORNING)
     Route: 065
     Dates: start: 20160716
  4. VALSARTAN [Suspect]
     Active Substance: VALSARTAN
     Dosage: 320 MG, QD (MORNING)
     Route: 065
     Dates: start: 20161103
  5. VALSARTAN [Suspect]
     Active Substance: VALSARTAN
     Dosage: 320 MG, QD (MORNING)
     Route: 065
     Dates: start: 20170303
  6. VALSARTAN [Suspect]
     Active Substance: VALSARTAN
     Dosage: 320 MG, QD (MORNING)
     Route: 065
     Dates: start: 20170614
  7. VALSARTAN [Suspect]
     Active Substance: VALSARTAN
     Dosage: 320 MG, QD (MORNING)
     Route: 065
     Dates: start: 20170914
  8. VALSARTAN [Suspect]
     Active Substance: VALSARTAN
     Dosage: 320 MG, QD (MORNING)
     Route: 065
     Dates: start: 20171103
  9. VALSARTAN [Suspect]
     Active Substance: VALSARTAN
     Dosage: UNK (0.5-0-0:MIN DOSE FREQUENCY AND 1-0-0: MAX DOSE FREQUENCY)UNK
     Route: 065
     Dates: start: 20180102, end: 20180118
  10. VALSARTAN [Suspect]
     Active Substance: VALSARTAN
     Dosage: 320 MG
     Route: 048
  11. VALSARTAN [Suspect]
     Active Substance: VALSARTAN
     Dosage: UNK UNK, QD (1-0-0)
     Route: 065
     Dates: start: 20201016
  12. VALSARTAN [Suspect]
     Active Substance: VALSARTAN
     Dosage: UNK UNK, QD (1-0-0)
     Route: 065
     Dates: start: 20201017
  13. VALSARTAN [Suspect]
     Active Substance: VALSARTAN
     Dosage: UNK UNK, QD (1-0-0)
     Route: 065
     Dates: start: 20201018
  14. VALSARTAN [Suspect]
     Active Substance: VALSARTAN
     Dosage: UNK UNK, QD (1-0-0)
     Route: 065
     Dates: start: 20201019
  15. VALSARTAN [Suspect]
     Active Substance: VALSARTAN
     Dosage: UNK UNK, QD (1-0-0)
     Route: 065
     Dates: start: 20201020
  16. VALSARTAN [Suspect]
     Active Substance: VALSARTAN
     Dosage: UNK UNK, QD (1-0-0)
     Route: 065
     Dates: start: 20201021
  17. ATORVASTATIN [Suspect]
     Active Substance: ATORVASTATIN
     Indication: Product used for unknown indication
     Dosage: UNK UNK, QD ( 0-0-1)
     Route: 065
     Dates: start: 20180102, end: 20180117
  18. ATORVASTATIN [Suspect]
     Active Substance: ATORVASTATIN
     Dosage: UNK UNK, QD (0-0-1)
     Route: 065
     Dates: start: 20201016
  19. ATORVASTATIN [Suspect]
     Active Substance: ATORVASTATIN
     Dosage: UNK UNK, QD (0-0-1)
     Route: 065
     Dates: start: 20201017
  20. ATORVASTATIN [Suspect]
     Active Substance: ATORVASTATIN
     Dosage: UNK UNK, QD ( 0-0-1)
     Route: 065
     Dates: start: 20201018
  21. ATORVASTATIN [Suspect]
     Active Substance: ATORVASTATIN
     Dosage: UNK UNK, QD ( 0-0-1)
     Route: 065
     Dates: start: 20201019
  22. ATORVASTATIN [Suspect]
     Active Substance: ATORVASTATIN
     Dosage: UNK UNK, QD ( 0-0-1)
     Route: 065
     Dates: start: 20201020
  23. ATORVASTATIN [Suspect]
     Active Substance: ATORVASTATIN
     Dosage: UNK UNK, QD (0-0-1)
     Route: 065
     Dates: start: 20201021
  24. SPIRONOLACTONE [Suspect]
     Active Substance: SPIRONOLACTONE
     Indication: Product used for unknown indication
     Dosage: UNK
     Route: 065
     Dates: end: 20201016
  25. BISOPROLOL [Suspect]
     Active Substance: BISOPROLOL
     Indication: Product used for unknown indication
     Dosage: UNK 0.5-0-0
     Route: 065
     Dates: start: 20180102, end: 20180118
  26. BISOPROLOL [Suspect]
     Active Substance: BISOPROLOL
     Dosage: UNK UNK, QD (0-0-1)
     Route: 065
     Dates: start: 20201016
  27. BISOPROLOL [Suspect]
     Active Substance: BISOPROLOL
     Dosage: UNK UNK, QD (0-0-1)
     Route: 065
     Dates: start: 20201017
  28. BISOPROLOL [Suspect]
     Active Substance: BISOPROLOL
     Dosage: UNK UNK, QD (0-0-1)
     Route: 065
     Dates: start: 20201018
  29. BISOPROLOL [Suspect]
     Active Substance: BISOPROLOL
     Dosage: UNK UNK, QD (0-0-1)
     Route: 065
     Dates: start: 20201019
  30. BISOPROLOL [Suspect]
     Active Substance: BISOPROLOL
     Dosage: UNK UNK, QD (0-0-1)
     Route: 065
     Dates: start: 20201020
  31. BISOPROLOL [Suspect]
     Active Substance: BISOPROLOL
     Dosage: UNK UNK, QD (0-0-1)
     Route: 065
     Dates: start: 20201021
  32. ALLOPURINOL [Suspect]
     Active Substance: ALLOPURINOL
     Indication: Product used for unknown indication
     Dosage: UNK  1-0-0
     Route: 065
     Dates: start: 20180102, end: 20180118
  33. ALLOPURINOL [Suspect]
     Active Substance: ALLOPURINOL
     Dosage: UNK  0.5-0-0
     Route: 065
     Dates: start: 20201016
  34. ALLOPURINOL [Suspect]
     Active Substance: ALLOPURINOL
     Dosage: UNK 0.5-0-0
     Route: 065
     Dates: start: 20201017
  35. ALLOPURINOL [Suspect]
     Active Substance: ALLOPURINOL
     Dosage: UNK 0.5-0-0
     Route: 065
     Dates: start: 20201018
  36. ALLOPURINOL [Suspect]
     Active Substance: ALLOPURINOL
     Dosage: UNK 0.5-0-0
     Route: 065
     Dates: start: 20201019
  37. ALLOPURINOL [Suspect]
     Active Substance: ALLOPURINOL
     Dosage: UNK 0.5-0-0
     Route: 065
     Dates: start: 20201020
  38. ALLOPURINOL [Suspect]
     Active Substance: ALLOPURINOL
     Dosage: UNK 0.5-0-0
     Route: 065
     Dates: start: 20201021
  39. TORSEMIDE [Suspect]
     Active Substance: TORSEMIDE
     Indication: Product used for unknown indication
     Dosage: UNK UNK, QD (1-0-0)
     Route: 065
     Dates: start: 20180110, end: 20180118
  40. TORSEMIDE [Suspect]
     Active Substance: TORSEMIDE
     Dosage: UNK UNK, QD (1-0-0)
     Route: 065
     Dates: start: 20201016
  41. TORSEMIDE [Suspect]
     Active Substance: TORSEMIDE
     Dosage: UNK UNK, QD (1-0-0)
     Route: 065
     Dates: start: 20201017
  42. TORSEMIDE [Suspect]
     Active Substance: TORSEMIDE
     Dosage: UNK UNK, QD (1-0-0)
     Route: 065
     Dates: start: 20201018
  43. TORSEMIDE [Suspect]
     Active Substance: TORSEMIDE
     Dosage: UNK UNK, QD (1-0-0)
     Route: 065
     Dates: start: 20201019
  44. TORSEMIDE [Suspect]
     Active Substance: TORSEMIDE
     Dosage: UNK UNK, QD (1-0-0)
     Route: 065
     Dates: start: 20201020
  45. TORSEMIDE [Suspect]
     Active Substance: TORSEMIDE
     Dosage: UNK UNK, QD (1-0-0)
     Route: 065
     Dates: start: 20201021
  46. AMLODIPINE BESYLATE [Suspect]
     Active Substance: AMLODIPINE BESYLATE
     Indication: Product used for unknown indication
     Dosage: UNK UNK, BID ((1-0-1) PAUSE)
     Route: 065
     Dates: start: 20180102, end: 20180110
  47. PANTOPRAZOLE [Suspect]
     Active Substance: PANTOPRAZOLE
     Indication: Product used for unknown indication
     Dosage: UNK UNK, QD ( 0-0-1  40)
     Route: 065
     Dates: start: 20180110, end: 20180117
  48. PANTOPRAZOLE [Suspect]
     Active Substance: PANTOPRAZOLE
     Dosage: UNK UNK, QD (1-0-0)
     Route: 065
     Dates: start: 20201016
  49. PANTOPRAZOLE [Suspect]
     Active Substance: PANTOPRAZOLE
     Dosage: UNK UNK, QD (1-0-0)
     Route: 065
     Dates: start: 20201017
  50. PANTOPRAZOLE [Suspect]
     Active Substance: PANTOPRAZOLE
     Dosage: UNK UNK, QD
     Route: 065
     Dates: start: 20201018
  51. PANTOPRAZOLE [Suspect]
     Active Substance: PANTOPRAZOLE
     Dosage: UNK UNK, QD
     Route: 065
     Dates: start: 20201019
  52. PANTOPRAZOLE [Suspect]
     Active Substance: PANTOPRAZOLE
     Dosage: UNK UNK, QD
     Route: 065
     Dates: start: 20201020
  53. PANTOPRAZOLE [Suspect]
     Active Substance: PANTOPRAZOLE
     Dosage: UNK UNK, QD
     Route: 065
     Dates: start: 20201021
  54. VALSARTAN [Suspect]
     Active Substance: VALSARTAN
     Indication: Product used for unknown indication
     Dosage: 320 MG
     Route: 065
  55. VALERIAN [Suspect]
     Active Substance: VALERIAN
     Indication: Product used for unknown indication
     Dosage: UNK
     Route: 065
     Dates: start: 20201017
  56. VALERIAN [Suspect]
     Active Substance: VALERIAN
     Dosage: UNK
     Route: 065
     Dates: start: 20201018
  57. ASPIRIN [Suspect]
     Active Substance: ASPIRIN
     Indication: Product used for unknown indication
     Dosage: UNK UNK, QD (1-0-0)
     Route: 065
     Dates: start: 20180102, end: 20180118
  58. ZOPICLONE [Suspect]
     Active Substance: ZOPICLONE
     Indication: Product used for unknown indication
     Dosage: UNK UNK, QD  (0-0-1)
     Route: 065
     Dates: start: 20180110, end: 20180116
  59. XARELTO [Suspect]
     Active Substance: RIVAROXABAN
     Indication: Product used for unknown indication
     Dosage: UNK UNK, QD (1-0-0)
     Route: 065
     Dates: end: 20201016
  60. FERROUS GLUCONATE [Suspect]
     Active Substance: FERROUS GLUCONATE
     Indication: Product used for unknown indication
     Dosage: UNK UNK, QD ( 0-1-0)
     Route: 065
     Dates: start: 20180110, end: 20180117
  61. CETIRIZINE HYDROCHLORIDE [Suspect]
     Active Substance: CETIRIZINE HYDROCHLORIDE
     Indication: Product used for unknown indication
     Dosage: UNK UNK, QD ( 0-0-1)
     Route: 065
     Dates: start: 20201016
  62. CETIRIZINE HYDROCHLORIDE [Suspect]
     Active Substance: CETIRIZINE HYDROCHLORIDE
     Dosage: UNK UNK, QD ( 0-0-1)
     Route: 065
     Dates: start: 20201017
  63. CETIRIZINE HYDROCHLORIDE [Suspect]
     Active Substance: CETIRIZINE HYDROCHLORIDE
     Dosage: UNK UNK, QD ( 0-0-1)
     Route: 065
     Dates: start: 20201018
  64. CETIRIZINE HYDROCHLORIDE [Suspect]
     Active Substance: CETIRIZINE HYDROCHLORIDE
     Dosage: UNK UNK, QD ( 0-0-1)
     Route: 065
     Dates: start: 20201019
  65. CETIRIZINE HYDROCHLORIDE [Suspect]
     Active Substance: CETIRIZINE HYDROCHLORIDE
     Dosage: UNK UNK, QD ( 0-0-1)
     Route: 065
     Dates: start: 20201020
  66. CETIRIZINE HYDROCHLORIDE [Suspect]
     Active Substance: CETIRIZINE HYDROCHLORIDE
     Dosage: UNK UNK, QD ( 0-0-1)
     Route: 065
     Dates: start: 20201021
  67. RANEXA [Suspect]
     Active Substance: RANOLAZINE
     Indication: Product used for unknown indication
     Dosage: UNK UNK, BID ( 1-0-1)
     Route: 065
     Dates: start: 20180102, end: 20180118
  68. FOLIC ACID [Suspect]
     Active Substance: FOLIC ACID
     Indication: Product used for unknown indication
     Dosage: UNK UNK, QD ( 1-0-0)
     Route: 065
     Dates: start: 20201019

REACTIONS (12)
  - Mental impairment [Unknown]
  - Anxiety disorder [Unknown]
  - Chronic kidney disease [Unknown]
  - Fear of disease [Unknown]
  - Sleep disorder [Unknown]
  - Nightmare [Unknown]
  - Hyperhidrosis [Unknown]
  - Dyspnoea [Not Recovered/Not Resolved]
  - Nervousness [Unknown]
  - Fatigue [Unknown]
  - Restlessness [Unknown]
  - Rectal polyp [Unknown]
